FAERS Safety Report 5115724-0 (Version None)
Quarter: 2006Q3

REPORT INFORMATION
  Report Type: 
  Country: None (occurrence: None)
  Receive Date: 20060927
  Receipt Date: 20060628
  Transmission Date: 20061208
  Serious: Yes (Hospitalization)
  Sender: FDA-Public Use
  Company Number: FR-ROCHE-453612

PATIENT
  Age: 44 Year
  Sex: Male
  Weight: 70 kg

DRUGS (4)
  1. PEGASYS [Suspect]
     Dosage: MONOTHERAPY.
     Route: 065
     Dates: start: 20060215, end: 20060414
  2. PEGASYS [Suspect]
     Dosage: DOSAGE REDUCED DUE TO ANAEMIA.
     Route: 065
     Dates: start: 20060415
  3. COMBIVIR [Interacting]
     Route: 065
     Dates: start: 20010615, end: 20060615
  4. SUSTIVA [Concomitant]
     Dosage: SUSTIVA HAS BEEN STOPPED IN JUNE 2006 AND HAS BEEN RE-INTRODUCED AT AN UNKNOWN DATE BETWEEN JUNE 20+
     Dates: start: 20010615

REACTIONS (3)
  - ANAEMIA [None]
  - CYTOLYTIC HEPATITIS [None]
  - DRUG INTERACTION [None]
